FAERS Safety Report 9913869 (Version 1)
Quarter: 2014Q1

REPORT INFORMATION
  Report Type: Spontaneous
  Country: US (occurrence: US)
  Receive Date: 20140220
  Receipt Date: 20140220
  Transmission Date: 20141002
  Serious: No
  Sender: FDA-Public Use
  Company Number: US-009507513-1402USA008236

PATIENT
  Age: 65 Year
  Sex: Female

DRUGS (5)
  1. JANUVIA [Suspect]
     Indication: TYPE 2 DIABETES MELLITUS
     Dosage: 100 MG, BID
     Route: 048
     Dates: start: 2011, end: 201401
  2. JANUVIA [Suspect]
     Dosage: 100 MG, BID
     Route: 048
     Dates: start: 2014
  3. METFORMIN [Concomitant]
  4. ENALAPRIL MALEATE [Concomitant]
     Route: 048
  5. SIMVASTATIN TABLETS, USP [Concomitant]
     Route: 048

REACTIONS (2)
  - Blood glucose increased [Recovering/Resolving]
  - Malaise [Recovering/Resolving]
